FAERS Safety Report 12184182 (Version 2)
Quarter: 2016Q1

REPORT INFORMATION
  Report Type: Report from Study
  Country: IT (occurrence: IT)
  Receive Date: 20160316
  Receipt Date: 20160324
  Transmission Date: 20160526
  Serious: Yes (Death, Other)
  Sender: FDA-Public Use
  Company Number: IT-ASTELLAS-2015US032342

PATIENT
  Age: 2 Month
  Sex: Female
  Weight: 1 kg

DRUGS (9)
  1. CAFFEINE. [Concomitant]
     Active Substance: CAFFEINE
     Indication: APNOEA
     Route: 042
     Dates: start: 20150718
  2. VASOPRESSIN. [Concomitant]
     Active Substance: VASOPRESSIN
     Indication: SHOCK
     Dosage: 0.0001 UI KG/CMM
     Route: 042
     Dates: start: 20150826
  3. DOPAMINE [Concomitant]
     Active Substance: DOPAMINE\DOPAMINE HYDROCHLORIDE
     Indication: SHOCK
     Dosage: 3 ?G/KG/, UNKNOWN FREQ.
     Route: 042
     Dates: start: 20150822
  4. BENTELAN [Concomitant]
     Active Substance: BETAMETHASONE SODIUM PHOSPHATE
     Indication: SHOCK
     Dosage: 0.2 MG, ONCE DAILY
     Route: 042
     Dates: start: 20150901
  5. MICAFUNGIN [Suspect]
     Active Substance: MICAFUNGIN
     Indication: FUNGAL INFECTION
     Route: 042
     Dates: start: 20150827
  6. FENTANYL. [Concomitant]
     Active Substance: FENTANYL
     Indication: SEDATION
     Dosage: 2 ?G/KG/H, UNKNOWN FREQ.
     Route: 042
     Dates: start: 20150829
  7. REOMAX                             /00020501/ [Concomitant]
     Indication: DIURETIC THERAPY
     Dosage: 0.3 ?G/KG/H, UNKNOWN FREQ.
     Route: 042
     Dates: start: 20150825
  8. CLEXANE [Concomitant]
     Active Substance: ENOXAPARIN SODIUM
     Indication: HYPERCOAGULATION
     Dosage: 95 UI, ONCE DAILY
     Route: 058
     Dates: start: 20150718
  9. MIDAZOLAM [Concomitant]
     Active Substance: MIDAZOLAM\MIDAZOLAM HYDROCHLORIDE
     Indication: SEDATION
     Dosage: 1 ?G/KG, UNKNOWN FREQ.
     Route: 042
     Dates: start: 20150829

REACTIONS (2)
  - Septic shock [Fatal]
  - Off label use [Unknown]

NARRATIVE: CASE EVENT DATE: 20150906
